FAERS Safety Report 18243487 (Version 2)
Quarter: 2020Q4

REPORT INFORMATION
  Report Type: Spontaneous
  Country: US (occurrence: US)
  Receive Date: 20200908
  Receipt Date: 20201002
  Transmission Date: 20210113
  Serious: Yes (Other)
  Sender: FDA-Public Use
  Company Number: US-AMERICAN REGENT INC-2020001808

PATIENT

DRUGS (2)
  1. ACETYLCYSTEINE SOLUTION, USP (7504-25) [Suspect]
     Active Substance: ACETYLCYSTEINE
     Indication: PRODUCT USED FOR UNKNOWN INDICATION
     Dosage: UNK
     Route: 065
     Dates: start: 2019
  2. ACETYLCYSTEINE SOLUTION, USP (7504-25) [Suspect]
     Active Substance: ACETYLCYSTEINE
     Dosage: 4 MILLILITER
     Route: 065
     Dates: start: 2020, end: 2020

REACTIONS (4)
  - Stomatitis [Recovered/Resolved]
  - Product quality issue [Unknown]
  - Diarrhoea [Recovered/Resolved]
  - Nausea [Recovered/Resolved]

NARRATIVE: CASE EVENT DATE: 2020
